FAERS Safety Report 14898014 (Version 2)
Quarter: 2018Q2

REPORT INFORMATION
  Report Type: Spontaneous
  Country: US (occurrence: US)
  Receive Date: 20180515
  Receipt Date: 20180517
  Transmission Date: 20180711
  Serious: No
  Sender: FDA-Public Use
  Company Number: US-SA-2017SA251248

PATIENT
  Age: 62 Year
  Sex: Male

DRUGS (2)
  1. TOUJEO [Suspect]
     Active Substance: INSULIN GLARGINE
     Dosage: DOSE:70 UNIT(S)
     Route: 058
     Dates: start: 2017
  2. SOLOSTAR [Suspect]
     Active Substance: DEVICE
     Dates: start: 2017

REACTIONS (1)
  - Product use issue [Unknown]
